FAERS Safety Report 11538070 (Version 1)
Quarter: 2015Q3

REPORT INFORMATION
  Report Type: Spontaneous
  Country: US (occurrence: US)
  Receive Date: 20150922
  Receipt Date: 20150922
  Transmission Date: 20151125
  Serious: Yes (Other)
  Sender: FDA-Public Use
  Company Number: US-MALLINCKRODT-T201500281

PATIENT
  Age: 51 Year
  Sex: Male
  Weight: 109 kg

DRUGS (2)
  1. ULTRA-TECHNEKOW DTE [Suspect]
     Active Substance: MOLYBDENUM MO-99\TECHNETIUM TC-99M
     Indication: CARDIAC STRESS TEST
     Dosage: 0.37 ML, SINGLE
     Route: 042
     Dates: start: 20150107, end: 20150107
  2. KIT FOR THE PREPARATION OF TECHNETIUM (TC-99M) SESTAMIBI INJECTION [Suspect]
     Active Substance: TECHNETIUM TC-99M
     Indication: CARDIAC STRESS TEST
     Dosage: UNK, SINGLE
     Route: 042
     Dates: start: 20150107, end: 20150107

REACTIONS (1)
  - Anaphylactic reaction [Recovered/Resolved]

NARRATIVE: CASE EVENT DATE: 20150107
